FAERS Safety Report 21503419 (Version 1)
Quarter: 2022Q4

REPORT INFORMATION
  Report Type: Spontaneous
  Country: US (occurrence: US)
  Receive Date: 20221025
  Receipt Date: 20221025
  Transmission Date: 20230113
  Serious: Yes (Other)
  Sender: FDA-Public Use
  Company Number: US-JNJFOC-20221039395

PATIENT
  Age: 9 Year
  Sex: Male

DRUGS (1)
  1. RISPERDAL M-TAB [Suspect]
     Active Substance: RISPERIDONE
     Indication: Attention deficit hyperactivity disorder
     Route: 048

REACTIONS (4)
  - Dyskinesia [Unknown]
  - Insomnia [Unknown]
  - Off label use [Unknown]
  - Nightmare [Unknown]

NARRATIVE: CASE EVENT DATE: 20111101
